FAERS Safety Report 5262425-4 (Version None)
Quarter: 2007Q1

REPORT INFORMATION
  Report Type: 
  Country: None (occurrence: None)
  Receive Date: 20070308
  Receipt Date: 20070308
  Transmission Date: 20070707
  Serious: Yes (Other)
  Sender: FDA-Public Use
  Company Number: None

PATIENT

DRUGS (2)
  1. FEXOFENADINE [Suspect]
     Indication: HYPERSENSITIVITY
     Dosage: 180MG ONCE DAILY PO
     Route: 048
     Dates: start: 20061118, end: 20070306
  2. FEXOFENADINE [Suspect]
     Indication: HYPERSENSITIVITY
     Dosage: 60MG ONCE OR TWICE DAIL PO
     Route: 048
     Dates: start: 20061218, end: 20070306

REACTIONS (5)
  - DYSGEUSIA [None]
  - DYSPEPSIA [None]
  - MALAISE [None]
  - PAROSMIA [None]
  - PHARMACEUTICAL PRODUCT COMPLAINT [None]
